FAERS Safety Report 19673554 (Version 1)
Quarter: 2021Q3

REPORT INFORMATION
  Report Type: Spontaneous
  Country: US (occurrence: US)
  Receive Date: 20210809
  Receipt Date: 20210809
  Transmission Date: 20211014
  Serious: No
  Sender: FDA-Public Use
  Company Number: US-SA-2021SA255009

PATIENT
  Sex: Male

DRUGS (3)
  1. SOMNAPURE [DIETARY SUPPLEMENT\HERBALS] [Suspect]
     Active Substance: DIETARY SUPPLEMENT\HERBALS
     Indication: INSOMNIA
     Dosage: UNK
  2. UNISOM SLEEPTABS [Suspect]
     Active Substance: DOXYLAMINE SUCCINATE
     Indication: INSOMNIA
     Dosage: UNK
  3. AMBIEN [Suspect]
     Active Substance: ZOLPIDEM TARTRATE
     Indication: INSOMNIA
     Dosage: UNK

REACTIONS (1)
  - Drug ineffective [Unknown]
